FAERS Safety Report 7629718-4 (Version None)
Quarter: 2011Q3

REPORT INFORMATION
  Report Type: 
  Country: None (occurrence: None)
  Receive Date: 20110722
  Receipt Date: 20110713
  Transmission Date: 20111222
  Serious: Yes (Death)
  Sender: FDA-Public Use
  Company Number: AU-ROCHE-790580

PATIENT
  Age: 30 Year

DRUGS (2)
  1. BUPRENORPHINE HCL [Suspect]
     Route: 065
  2. DIAZEPAM [Suspect]
     Route: 065

REACTIONS (6)
  - ARTERIOSCLEROSIS CORONARY ARTERY [None]
  - ABNORMAL BEHAVIOUR [None]
  - HEPATITIS C [None]
  - MYOCARDIAL ISCHAEMIA [None]
  - ACCIDENTAL POISONING [None]
  - ACUTE MYOCARDIAL INFARCTION [None]
